FAERS Safety Report 19952333 (Version 1)
Quarter: 2021Q4

REPORT INFORMATION
  Report Type: Spontaneous
  Country: US (occurrence: US)
  Receive Date: 20211014
  Receipt Date: 20211014
  Transmission Date: 20220303
  Serious: No
  Sender: FDA-Public Use
  Company Number: US-TOLMAR, INC.-21US028948

PATIENT
  Sex: Female

DRUGS (1)
  1. ELIGARD [Suspect]
     Active Substance: LEUPROLIDE ACETATE
     Indication: Vaginal haemorrhage
     Dosage: UNK
     Dates: start: 20210716

REACTIONS (2)
  - Intercepted product selection error [Unknown]
  - Off label use [Unknown]
